FAERS Safety Report 5752053-6 (Version None)
Quarter: 2008Q2

REPORT INFORMATION
  Report Type: 
  Country: None (occurrence: None)
  Receive Date: 20080527
  Receipt Date: 20080508
  Transmission Date: 20081010
  Serious: Yes (Hospitalization)
  Sender: FDA-Public Use
  Company Number: 2008AL004228

PATIENT
  Sex: Female
  Weight: 62.5964 kg

DRUGS (4)
  1. DIGOXIN [Suspect]
     Dosage: 0.25 MG, DAILY PO
     Route: 048
  2. ENALAPRIL MALEATE [Concomitant]
  3. METOPROLOL TARTRATE [Concomitant]
  4. PREVACID [Concomitant]

REACTIONS (2)
  - NAUSEA [None]
  - PALPITATIONS [None]
